FAERS Safety Report 5126327-6 (Version None)
Quarter: 2006Q4

REPORT INFORMATION
  Report Type: 
  Country: None (occurrence: None)
  Receive Date: 20061010
  Receipt Date: 20060928
  Transmission Date: 20070319
  Serious: Yes (Hospitalization, Other)
  Sender: FDA-Public Use
  Company Number: 2006099613

PATIENT
  Age: 80 Year
  Sex: Female
  Weight: 82.5547 kg

DRUGS (1)
  1. CADUET [Suspect]
     Indication: DRUG USE FOR UNKNOWN INDICATION
     Dosage: 5/20

REACTIONS (3)
  - BILE DUCT STONE [None]
  - BLOOD CREATINE PHOSPHOKINASE INCREASED [None]
  - CHOLELITHIASIS [None]
